FAERS Safety Report 23846572 (Version 1)
Quarter: 2024Q2

REPORT INFORMATION
  Report Type: Spontaneous
  Country: PY (occurrence: PY)
  Receive Date: 20240513
  Receipt Date: 20240513
  Transmission Date: 20240716
  Serious: Yes (Hospitalization)
  Sender: FDA-Public Use
  Company Number: PY-BoehringerIngelheim-2024-BI-026220

PATIENT
  Age: 82 Year
  Sex: Female
  Weight: 65 kg

DRUGS (1)
  1. PRAXBIND [Suspect]
     Active Substance: IDARUCIZUMAB
     Indication: Atrial fibrillation

REACTIONS (6)
  - Subdural haematoma [Unknown]
  - Hypertensive crisis [Unknown]
  - Acute pulmonary oedema [Unknown]
  - Respiratory distress [Unknown]
  - Haemorrhage [Unknown]
  - Fall [Unknown]
